FAERS Safety Report 7542004-6 (Version None)
Quarter: 2011Q2

REPORT INFORMATION
  Report Type: 
  Country: None (occurrence: None)
  Receive Date: 20110613
  Receipt Date: 20110606
  Transmission Date: 20111010
  Serious: Yes (Disabling)
  Sender: FDA-Public Use
  Company Number: GB-SANOFI-AVENTIS-2011SA018116

PATIENT
  Sex: Female
  Weight: 60.8 kg

DRUGS (1)
  1. FEXOFENADINE HCL [Suspect]
     Route: 065
     Dates: start: 20110301

REACTIONS (3)
  - CHEST DISCOMFORT [None]
  - PALPITATIONS [None]
  - DYSPNOEA [None]
